FAERS Safety Report 6417098-1 (Version None)
Quarter: 2009Q4

REPORT INFORMATION
  Report Type: 
  Country: None (occurrence: None)
  Receive Date: 20091028
  Receipt Date: 20091014
  Transmission Date: 20100525
  Serious: Yes (Death, Hospitalization, Other)
  Sender: FDA-Public Use
  Company Number: IT-BAYER-200936036GPV

PATIENT
  Age: 43 Year
  Sex: Male
  Weight: 63 kg

DRUGS (19)
  1. NIFEDIPINE [Suspect]
     Indication: HYPERTENSION
     Dosage: TOTAL DAILY DOSE: 60 MG
     Dates: start: 20071031, end: 20071102
  2. ZIDOVUDINE [Interacting]
     Indication: HIV INFECTION
     Dosage: TOTAL DAILY DOSE: 500 MG
     Dates: start: 19980101, end: 19990101
  3. LAMIVUDINE [Interacting]
     Indication: HIV INFECTION
     Dosage: TOTAL DAILY DOSE: 300 MG
     Dates: start: 19980101, end: 19990101
  4. LAMIVUDINE [Interacting]
     Dosage: TOTAL DAILY DOSE: 300 MG
     Dates: start: 20060901, end: 20070201
  5. STAVUDINE [Interacting]
     Indication: HIV INFECTION
     Dosage: TOTAL DAILY DOSE: 80 MG
     Dates: start: 19990101, end: 20010101
  6. DIDANOSINE [Interacting]
     Indication: HIV INFECTION
     Dosage: TOTAL DAILY DOSE: 400 MG
     Dates: start: 19990101, end: 20010101
  7. TENOFOVIR [Interacting]
     Indication: HIV INFECTION
     Dosage: TOTAL DAILY DOSE: 300 MG
     Dates: start: 20060901, end: 20070201
  8. TENOFOVIR [Interacting]
     Dosage: TOTAL DAILY DOSE: 300 MG
     Dates: start: 20070401, end: 20071101
  9. RITONAVIR [Interacting]
     Indication: HIV INFECTION
     Dates: start: 20060901, end: 20070201
  10. RITONAVIR [Interacting]
     Dosage: TOTAL DAILY DOSE: 200 MG
     Dates: start: 20070401, end: 20071101
  11. EMTRICITABINE [Interacting]
     Indication: HIV INFECTION
     Dosage: TOTAL DAILY DOSE: 200 MG
     Dates: start: 20070401, end: 20071101
  12. DISULFIRAM [Interacting]
     Indication: ALCOHOL ABUSE
     Dosage: TOTAL DAILY DOSE: 200 MG
     Dates: start: 20070501, end: 20071101
  13. FOSAMPRENAVIR [Concomitant]
     Indication: HIV INFECTION
     Dates: start: 20060901, end: 20070201
  14. FOSAMPRENAVIR [Concomitant]
     Dosage: TOTAL DAILY DOSE: 1400 MG
     Dates: start: 20070401, end: 20071101
  15. GABAPENTIN [Concomitant]
     Indication: NEUROPATHY PERIPHERAL
     Dosage: TOTAL DAILY DOSE: 400 MG
     Dates: start: 20070401, end: 20071101
  16. VITAMIN B COMPLEX CAP [Concomitant]
     Indication: NEUROPATHY PERIPHERAL
     Dates: start: 20070101, end: 20070101
  17. MAGNESIUM [Concomitant]
     Indication: NEUROPATHY PERIPHERAL
     Dates: start: 20070101, end: 20070101
  18. LORAZEPAM [Concomitant]
     Indication: INSOMNIA
     Dosage: TOTAL DAILY DOSE: 2.5 MG
     Dates: start: 20070401, end: 20071101
  19. AMITRIPTYLINE [Concomitant]
     Indication: ALCOHOL ABUSE
     Dosage: TOTAL DAILY DOSE: 25 MG
     Dates: start: 20070401, end: 20071101

REACTIONS (3)
  - BLOOD PRESSURE DECREASED [None]
  - LACTIC ACIDOSIS [None]
  - MULTI-ORGAN FAILURE [None]
